FAERS Safety Report 23499613 (Version 1)
Quarter: 2024Q1

REPORT INFORMATION
  Report Type: Spontaneous
  Country: IE (occurrence: IE)
  Receive Date: 20240208
  Receipt Date: 20240208
  Transmission Date: 20240410
  Serious: Yes (Hospitalization, Other)
  Sender: FDA-Public Use
  Company Number: IE-BIOVITRUM-2024-IE-001803

PATIENT
  Age: 3 Decade
  Sex: Female

DRUGS (2)
  1. AVATROMBOPAG [Suspect]
     Active Substance: AVATROMBOPAG
     Indication: Immune thrombocytopenia
     Dosage: ONCE DAILY
     Route: 048
  2. AVATROMBOPAG [Suspect]
     Active Substance: AVATROMBOPAG
     Dosage: 3 TIMES PER WEEK
     Route: 048

REACTIONS (2)
  - Thrombocytosis [Recovered/Resolved]
  - Hemianopia [Recovered/Resolved]
